FAERS Safety Report 17233896 (Version 2)
Quarter: 2020Q1

REPORT INFORMATION
  Report Type: Spontaneous
  Country: US (occurrence: US)
  Receive Date: 20200106
  Receipt Date: 20200214
  Transmission Date: 20200409
  Serious: No
  Sender: FDA-Public Use
  Company Number: NVSC2020US000512

PATIENT
  Sex: Female

DRUGS (1)
  1. LATANOPROST. [Suspect]
     Active Substance: LATANOPROST
     Indication: PRODUCT USED FOR UNKNOWN INDICATION
     Dosage: UNK UNK, QD (ONCE IN THE EVENING,5 YEARS)
     Route: 065
     Dates: start: 20150101

REACTIONS (3)
  - Product dose omission [Unknown]
  - Product container issue [Unknown]
  - Product packaging quantity issue [Unknown]
